FAERS Safety Report 8469925-4 (Version None)
Quarter: 2012Q2

REPORT INFORMATION
  Report Type: 
  Country: None (occurrence: None)
  Receive Date: 20120627
  Receipt Date: 20120618
  Transmission Date: 20120825
  Serious: Yes (Other)
  Sender: FDA-Public Use
  Company Number: -BIOGENIDEC-2012BI021877

PATIENT
  Sex: Female

DRUGS (3)
  1. TYSABRI [Suspect]
     Indication: MULTIPLE SCLEROSIS
     Route: 042
     Dates: start: 20081009, end: 20101214
  2. IMURAN [Concomitant]
  3. STEROIDS [Concomitant]

REACTIONS (1)
  - RENAL CANCER [None]
